FAERS Safety Report 23798650 (Version 1)
Quarter: 2024Q2

REPORT INFORMATION
  Report Type: Spontaneous
  Country: CN (occurrence: CN)
  Receive Date: 20240430
  Receipt Date: 20240430
  Transmission Date: 20240715
  Serious: Yes (Life-Threatening, Other)
  Sender: FDA-Public Use
  Company Number: CN-BAYER-2024A064200

PATIENT
  Age: 65 Year
  Sex: Female
  Weight: 61 kg

DRUGS (1)
  1. ULTRAVIST [Suspect]
     Active Substance: IOPROMIDE
     Indication: Computerised tomogram
     Dosage: 100 ML, ONCE
     Route: 042
     Dates: start: 20240415, end: 20240415

REACTIONS (20)
  - Anaphylactic shock [Recovering/Resolving]
  - Altered state of consciousness [Recovered/Resolved]
  - Pruritus [None]
  - Oral discomfort [None]
  - Hypoaesthesia [None]
  - Limb discomfort [None]
  - Cold sweat [None]
  - Chest discomfort [Recovering/Resolving]
  - Dyspnoea [None]
  - Mouth swelling [Recovering/Resolving]
  - Heart rate increased [Recovered/Resolved]
  - Blood pressure decreased [Recovered/Resolved]
  - Oxygen saturation decreased [Recovered/Resolved]
  - Cyanosis [Recovering/Resolving]
  - Pupillary reflex impaired [Recovered/Resolved]
  - Palpitations [Recovering/Resolving]
  - Feeling cold [None]
  - Respiratory rate increased [None]
  - Depressed mood [None]
  - Asthenia [Recovering/Resolving]

NARRATIVE: CASE EVENT DATE: 20240415
